FAERS Safety Report 12892704 (Version 1)
Quarter: 2016Q4

REPORT INFORMATION
  Report Type: Spontaneous
  Country: US (occurrence: US)
  Receive Date: 20161027
  Receipt Date: 20161027
  Transmission Date: 20170207
  Serious: Yes (Hospitalization)
  Sender: FDA-Public Use
  Company Number: None

PATIENT
  Age: 56 Year
  Sex: Male
  Weight: 80.9 kg

DRUGS (1)
  1. LISINOPRIL. [Suspect]
     Active Substance: LISINOPRIL
     Route: 048
     Dates: start: 20160108, end: 20160702

REACTIONS (7)
  - Tremor [None]
  - Toxicity to various agents [None]
  - Electrocardiogram QRS complex prolonged [None]
  - Asthenia [None]
  - Hyperkalaemia [None]
  - Gait disturbance [None]
  - Electrocardiogram T wave peaked [None]

NARRATIVE: CASE EVENT DATE: 20160701
